FAERS Safety Report 10089536 (Version 1)
Quarter: 2014Q2

REPORT INFORMATION
  Report Type: Spontaneous
  Country: US (occurrence: US)
  Receive Date: 20140421
  Receipt Date: 20140421
  Transmission Date: 20141212
  Serious: Yes (Hospitalization)
  Sender: FDA-Public Use
  Company Number: US-MYLANLABS-2014S1008297

PATIENT
  Age: 78 Year
  Sex: Male

DRUGS (6)
  1. ALISKIREN [Suspect]
     Indication: HYPERTENSION
     Dosage: 150MG/DAY
     Route: 065
  2. AMLODIPINE W/BENAZEPRIL [Suspect]
     Indication: HYPERTENSION
     Dosage: 10/20MG AMLODIPINE/BENAZEPRIL
     Route: 065
  3. SPIRONOLACTONE [Suspect]
     Indication: HYPERTENSION
     Dosage: 25MG
     Route: 065
  4. HYDROCHLOROTHIAZIDE [Suspect]
     Indication: HYPERTENSION
     Dosage: 25MG DAILY
     Route: 065
  5. CARVEDILOL [Concomitant]
     Indication: HYPERTENSION
     Dosage: 25MG
     Route: 065
  6. ROSUVASTATIN [Concomitant]
     Dosage: 40MG DAILY
     Route: 065

REACTIONS (2)
  - Renal failure acute [Recovering/Resolving]
  - Bradycardia [Recovering/Resolving]
